FAERS Safety Report 7762367-6 (Version None)
Quarter: 2011Q3

REPORT INFORMATION
  Report Type: 
  Country: None (occurrence: None)
  Receive Date: 20110920
  Receipt Date: 20110913
  Transmission Date: 20111222
  Serious: Yes (Hospitalization, Other)
  Sender: FDA-Public Use
  Company Number: MX-SANOFI-AVENTIS-2011SA059844

PATIENT
  Age: 51 Year
  Sex: Female
  Weight: 66 kg

DRUGS (2)
  1. INSULIN GLARGINE [Suspect]
     Route: 058
     Dates: start: 20070101, end: 20110629
  2. INSULIN GLARGINE [Suspect]
     Indication: TYPE 2 DIABETES MELLITUS
     Route: 058
     Dates: start: 20110629

REACTIONS (3)
  - VITRECTOMY [None]
  - DIABETIC RETINOPATHY [None]
  - HYPERGLYCAEMIA [None]
